FAERS Safety Report 9300207 (Version 4)
Quarter: 2013Q3

REPORT INFORMATION
  Report Type: Spontaneous
  Country: GB (occurrence: GB)
  Receive Date: 20130521
  Receipt Date: 20130816
  Transmission Date: 20140515
  Serious: Yes (Other)
  Sender: FDA-Public Use
  Company Number: PHFR2013GB002884

PATIENT
  Sex: Female

DRUGS (2)
  1. ZOMETA [Suspect]
     Dosage: 4 MG, EVERY 4 WEEKS
  2. ZOMETA [Suspect]
     Dosage: UNK UKN, UNK

REACTIONS (14)
  - Lymphoedema [Unknown]
  - Muscle twitching [Unknown]
  - Sleep phase rhythm disturbance [Unknown]
  - Diarrhoea [Unknown]
  - Vomiting [Unknown]
  - Anxiety [Unknown]
  - Asthenia [Unknown]
  - Oral disorder [Unknown]
  - Insomnia [Unknown]
  - Paraesthesia [Unknown]
  - Malaise [Unknown]
  - Fatigue [Unknown]
  - Back pain [Unknown]
  - Muscle spasms [Unknown]
